FAERS Safety Report 17861997 (Version 2)
Quarter: 2020Q3

REPORT INFORMATION
  Report Type: Spontaneous
  Country: JP (occurrence: JP)
  Receive Date: 20200604
  Receipt Date: 20200715
  Transmission Date: 20201103
  Serious: Yes (Other)
  Sender: FDA-Public Use
  Company Number: JP-JNJFOC-20200537042

PATIENT
  Age: 94 Year
  Sex: Male
  Weight: 51.58 kg

DRUGS (11)
  1. TOVIAZ [Concomitant]
     Active Substance: FESOTERODINE FUMARATE
     Indication: DYSURIA
     Dosage: DAILY DOSE 1 DF
     Route: 048
     Dates: start: 20180907
  2. URIEF [Concomitant]
     Active Substance: SILODOSIN
     Indication: DYSURIA
     Dosage: DAILY DOSE 2 DF
     Route: 048
     Dates: start: 20180907
  3. XARELTO [Suspect]
     Active Substance: RIVAROXABAN
     Indication: ATRIAL FIBRILLATION
     Dosage: DAILY DOSE 1 DF
     Route: 048
     Dates: start: 20180907
  4. AVOLVE [Concomitant]
     Active Substance: DUTASTERIDE
     Dosage: DAILY DOSE 1 DF
     Route: 048
     Dates: start: 20180907
  5. MAGNESIUM OXIDE. [Concomitant]
     Active Substance: MAGNESIUM OXIDE
     Indication: CONSTIPATION
     Dosage: DAILY DOSE 4 DF
     Route: 048
     Dates: start: 20180907
  6. ROSUVASTATIN. [Concomitant]
     Active Substance: ROSUVASTATIN
     Indication: DYSLIPIDAEMIA
     Dosage: DAILY DOSE 1 DF
     Route: 048
     Dates: start: 20180907
  7. ALLOPURINOL. [Concomitant]
     Active Substance: ALLOPURINOL
     Indication: HYPERURICAEMIA
     Dosage: DAILY DOSE 1 DF
     Route: 048
     Dates: start: 20180907
  8. SENNOSIDE A+B [Concomitant]
     Active Substance: SENNOSIDES A AND B
     Dosage: DAILY DOSE 3 DF
     Route: 048
     Dates: start: 20180907, end: 20200416
  9. LANSOPRAZOLE. [Concomitant]
     Active Substance: LANSOPRAZOLE
     Indication: GASTROOESOPHAGEAL REFLUX DISEASE
     Dosage: DAILY DOSE 1 DF
     Route: 048
     Dates: start: 20180907
  10. NERIZA [Concomitant]
     Indication: COUGH
     Dosage: DAILY DOSE 1 G
     Route: 048
     Dates: start: 20180907
  11. CIBENOL [Concomitant]
     Active Substance: CIFENLINE
     Route: 065

REACTIONS (2)
  - Tongue rough [Not Recovered/Not Resolved]
  - Oral candidiasis [Not Recovered/Not Resolved]

NARRATIVE: CASE EVENT DATE: 20200221
